FAERS Safety Report 10148845 (Version 1)
Quarter: 2014Q2

REPORT INFORMATION
  Report Type: Spontaneous
  Country: PL (occurrence: PL)
  Receive Date: 20140502
  Receipt Date: 20140502
  Transmission Date: 20141212
  Serious: Yes (Hospitalization)
  Sender: FDA-Public Use
  Company Number: PL-ROCHE-1393455

PATIENT
  Age: 65 Year
  Sex: Male
  Weight: 81 kg

DRUGS (10)
  1. COPEGUS [Suspect]
     Indication: HEPATITIS C
     Route: 048
     Dates: start: 20130919
  2. COPEGUS [Suspect]
     Route: 065
  3. PEGASYS [Suspect]
     Indication: HEPATITIS C
     Route: 058
     Dates: start: 20130919
  4. PEGASYS [Suspect]
     Route: 065
  5. VICTRELIS [Suspect]
     Indication: HEPATITIS C
     Route: 048
     Dates: start: 20131018
  6. PROPRANOLOL [Concomitant]
     Indication: VARICES OESOPHAGEAL
     Route: 065
     Dates: start: 2011
  7. DIURESIN SR [Concomitant]
     Indication: HEPATIC CIRRHOSIS
     Route: 065
     Dates: start: 2011
  8. DIURESIN SR [Concomitant]
     Indication: HYPERTENSION
  9. HUMALOG MIX 50/50 [Concomitant]
     Indication: TYPE 2 DIABETES MELLITUS
     Route: 065
     Dates: start: 2011
  10. HEPA-MERZ [Concomitant]
     Indication: HEPATIC CIRRHOSIS
     Route: 065
     Dates: start: 2011

REACTIONS (1)
  - Urosepsis [Recovered/Resolved]
